FAERS Safety Report 7927171-4 (Version None)
Quarter: 2011Q4

REPORT INFORMATION
  Report Type: 
  Country: None (occurrence: None)
  Receive Date: 20111118
  Receipt Date: 20111108
  Transmission Date: 20120403
  Serious: Yes (Other)
  Sender: FDA-Public Use
  Company Number: US-BAYER-2011-031995

PATIENT
  Age: 25 Year
  Sex: Female
  Weight: 84 kg

DRUGS (7)
  1. HYDROCODONE BITARTRATE [Concomitant]
     Dosage: UNK
     Dates: start: 20090810
  2. PROMETHAZINE [Concomitant]
     Indication: NAUSEA
     Dosage: UNK
     Route: 048
     Dates: start: 20090814
  3. HYDROCODONE BITARTRATE [Concomitant]
     Indication: PAIN
     Dosage: UNK
     Route: 048
     Dates: start: 20090814
  4. YASMIN [Suspect]
     Indication: ORAL CONTRACEPTION
     Dosage: UNK
     Dates: start: 20060101, end: 20080101
  5. SYNTHROID [Concomitant]
     Indication: HYPOTHYROIDISM
     Dosage: UNK
     Dates: start: 20090101
  6. YAZ [Suspect]
     Indication: ORAL CONTRACEPTION
     Dosage: UNK
     Route: 048
     Dates: start: 20080501, end: 20080701
  7. AMOXICILLIN [Concomitant]
     Dosage: 500 MG, UNK
     Route: 048
     Dates: start: 20090810

REACTIONS (11)
  - BACK PAIN [None]
  - ANXIETY [None]
  - CHILLS [None]
  - ABDOMINAL PAIN [None]
  - ABDOMINAL DISTENSION [None]
  - PAIN [None]
  - NAUSEA [None]
  - VOMITING [None]
  - CHOLECYSTITIS CHRONIC [None]
  - INJURY [None]
  - DYSPEPSIA [None]
